FAERS Safety Report 7324216-X (Version None)
Quarter: 2011Q1

REPORT INFORMATION
  Report Type: 
  Country: None (occurrence: None)
  Receive Date: 20110301
  Receipt Date: 20110221
  Transmission Date: 20110831
  Serious: Yes (Hospitalization)
  Sender: FDA-Public Use
  Company Number: JP-BRACCO-004510

PATIENT
  Age: 68 Year
  Sex: Female
  Weight: 47 kg

DRUGS (1)
  1. PROHANCE [Suspect]
     Indication: DIAGNOSTIC PROCEDURE
     Route: 042
     Dates: start: 20110218, end: 20110218

REACTIONS (5)
  - BLOOD PRESSURE DECREASED [None]
  - TREMOR [None]
  - NAUSEA [None]
  - FEELING ABNORMAL [None]
  - CHILLS [None]
